FAERS Safety Report 4705431-8 (Version None)
Quarter: 2005Q3

REPORT INFORMATION
  Report Type: 
  Country: None (occurrence: None)
  Receive Date: 20050701
  Receipt Date: 20050621
  Transmission Date: 20060218
  Serious: Yes (Hospitalization)
  Sender: FDA-Public Use
  Company Number: NL-GLAXOSMITHKLINE-B0385092A

PATIENT
  Age: 41 Year
  Sex: Male

DRUGS (1)
  1. AMOXICILLIN [Suspect]
     Indication: INFLUENZA
     Dosage: 250MG THREE TIMES PER DAY
     Dates: start: 20050305, end: 20050305

REACTIONS (7)
  - ANAEMIA [None]
  - ERYTHEMA [None]
  - HAEMOGLOBIN DECREASED [None]
  - HEPATIC ENZYME INCREASED [None]
  - MALAISE [None]
  - RASH [None]
  - RASH PUSTULAR [None]
